FAERS Safety Report 7016243-7 (Version None)
Quarter: 2010Q3

REPORT INFORMATION
  Report Type: 
  Country: None (occurrence: None)
  Receive Date: 20100927
  Receipt Date: 20100429
  Transmission Date: 20110219
  Serious: No
  Sender: FDA-Public Use
  Company Number: US-ASTRAZENECA-2010SE19406

PATIENT
  Age: 87 Year
  Sex: Female

DRUGS (7)
  1. ARIMIDEX [Suspect]
     Indication: BREAST CANCER
     Route: 048
     Dates: start: 20070101
  2. CRESTOR [Concomitant]
     Indication: BLOOD CHOLESTEROL INCREASED
     Dosage: DAILY
     Route: 048
  3. AMITRIPTYLINE HCL [Concomitant]
     Indication: DEPRESSION
     Dosage: PRN
     Route: 048
  4. HYDROCODONE [Concomitant]
     Indication: PAIN
     Dosage: PRN
     Route: 048
  5. OXYCODONE [Concomitant]
     Indication: PAIN
     Dosage: PRN
     Route: 048
  6. CALTRATE [Concomitant]
     Indication: OSTEOPOROSIS
     Dosage: DAILY
     Route: 048
  7. VIT D [Concomitant]
     Indication: OSTEOPOROSIS
     Dosage: DAILY
     Route: 048

REACTIONS (2)
  - AMNESIA [None]
  - OSTEOPOROSIS [None]
